FAERS Safety Report 21441186 (Version 1)
Quarter: 2022Q4

REPORT INFORMATION
  Report Type: Spontaneous
  Country: US (occurrence: None)
  Receive Date: 20221010
  Receipt Date: 20221010
  Transmission Date: 20230112
  Serious: Yes (Other)
  Sender: FDA-Public Use
  Company Number: None

PATIENT
  Age: 62 Year
  Sex: Female
  Weight: 85.5 kg

DRUGS (1)
  1. ESTRADIOL TRANSDERMAL SYSTEM [Suspect]
     Active Substance: ESTRADIOL
     Indication: Hormone replacement therapy
     Dosage: OTHER QUANTITY : 1 PATCH(ES);?OTHER FREQUENCY : EVERY WEEK;?
     Route: 062
     Dates: start: 20220902, end: 20220905

REACTIONS (3)
  - Application site burn [None]
  - Burns third degree [None]
  - Application site scar [None]

NARRATIVE: CASE EVENT DATE: 20220905
